FAERS Safety Report 8437796-8 (Version None)
Quarter: 2012Q2

REPORT INFORMATION
  Report Type: 
  Country: None (occurrence: None)
  Receive Date: 20120614
  Receipt Date: 20120514
  Transmission Date: 20120825
  Serious: No
  Sender: FDA-Public Use
  Company Number: US-AMGEN-USASP2012030057

PATIENT
  Age: 69 Year
  Sex: Female

DRUGS (11)
  1. PREDNISONE TAB [Concomitant]
  2. PROLIA [Suspect]
     Indication: OSTEOPOROSIS POSTMENOPAUSAL
     Dosage: 120 MG, Q6MO
     Dates: start: 20110531
  3. CENTRUM                            /00554501/ [Concomitant]
     Dosage: UNK
  4. LEUCOVORIN CALCIUM [Concomitant]
  5. SYNTHROID [Concomitant]
  6. EVISTA [Concomitant]
  7. METHOTREXATE [Concomitant]
  8. CALCIUM WITH VITAMIN D             /00944201/ [Concomitant]
  9. LIPITOR [Concomitant]
  10. VITAMIN E                          /00110501/ [Concomitant]
  11. FIBERCON [Concomitant]
     Dosage: UNK

REACTIONS (4)
  - MUSCULAR WEAKNESS [None]
  - STAPHYLOCOCCAL INFECTION [None]
  - IMMUNE SYSTEM DISORDER [None]
  - BACK PAIN [None]
